FAERS Safety Report 20016047 (Version 1)
Quarter: 2021Q4

REPORT INFORMATION
  Report Type: Spontaneous
  Country: US (occurrence: None)
  Receive Date: 20211102
  Receipt Date: 20211102
  Transmission Date: 20220303
  Serious: No
  Sender: FDA-Public Use
  Company Number: None

PATIENT
  Age: 68 Year
  Sex: Female
  Weight: 67 kg

DRUGS (15)
  1. CAPECITABINE [Suspect]
     Active Substance: CAPECITABINE
     Indication: Pancreatic carcinoma
     Dosage: OTHER FREQUENCY : BID FOR 14/21 DAYS;?
     Route: 048
     Dates: start: 20210226
  2. LISINOPRIL [Concomitant]
  3. Synthroid 1 [Concomitant]
  4. ALPRAZOLAM [Concomitant]
     Active Substance: ALPRAZOLAM
  5. LATANOPROST [Concomitant]
     Active Substance: LATANOPROST
  6. PROCHLORPERAZINE MALEATE [Concomitant]
  7. ONDANSETRON [Concomitant]
  8. ZOLPIDEM TARTRATE [Concomitant]
  9. VITAMIN D3 [Concomitant]
  10. LYRICA [Concomitant]
  11. DULOXETINE [Concomitant]
     Active Substance: DULOXETINE
  12. FLONASE ALLERGY RELIEF [Concomitant]
  13. LUMIGAN [Concomitant]
     Active Substance: BIMATOPROST
  14. VITAMINS [Concomitant]
     Active Substance: VITAMINS
  15. VITAMIN B6 [Concomitant]
     Active Substance: PYRIDOXINE HYDROCHLORIDE

REACTIONS (2)
  - Skin fissures [None]
  - Skin irritation [None]

NARRATIVE: CASE EVENT DATE: 20211102
